FAERS Safety Report 18180053 (Version 1)
Quarter: 2020Q3

REPORT INFORMATION
  Report Type: Spontaneous
  Country: US (occurrence: US)
  Receive Date: 20200821
  Receipt Date: 20200821
  Transmission Date: 20201103
  Serious: Yes (Other)
  Sender: FDA-Public Use
  Company Number: US-SUN PHARMACEUTICAL INDUSTRIES LTD-2020R1-257958

PATIENT
  Age: 15 Year
  Sex: Male

DRUGS (2)
  1. ISOTRETINOIN. [Suspect]
     Active Substance: ISOTRETINOIN
     Indication: ACNE
     Dosage: UNK
     Route: 048
  2. TRETINOIN MICROSPHERE [Suspect]
     Active Substance: TRETINOIN
     Indication: ACNE
     Dosage: UNK
     Route: 061

REACTIONS (6)
  - Eye naevus [Unknown]
  - Depression [Recovered/Resolved]
  - Suicidal ideation [Unknown]
  - Ciliary body melanoma [Unknown]
  - Lip dry [Unknown]
  - Thermal burn [Unknown]
